FAERS Safety Report 21405879 (Version 1)
Quarter: 2022Q4

REPORT INFORMATION
  Report Type: Spontaneous
  Country: US (occurrence: US)
  Receive Date: 20221004
  Receipt Date: 20221004
  Transmission Date: 20230112
  Serious: No
  Sender: FDA-Public Use
  Company Number: US-LUPIN PHARMACEUTICALS INC.-2022-11622

PATIENT
  Age: 7 Decade
  Sex: Female

DRUGS (3)
  1. IMIPRAMINE PAMOATE [Suspect]
     Active Substance: IMIPRAMINE PAMOATE
     Indication: Generalised anxiety disorder
     Dosage: UNK
     Route: 065
  2. IMIPRAMINE PAMOATE [Suspect]
     Active Substance: IMIPRAMINE PAMOATE
     Dosage: 250 MILLIGRAM, QD
     Route: 065
  3. IMIPRAMINE PAMOATE [Suspect]
     Active Substance: IMIPRAMINE PAMOATE
     Dosage: 30 MILLIGRAM, QD
     Route: 065

REACTIONS (3)
  - Skin hyperpigmentation [Recovered/Resolved]
  - Rebound effect [Unknown]
  - Anxiety [Unknown]
